FAERS Safety Report 9158593 (Version 1)
Quarter: 2013Q1

REPORT INFORMATION
  Report Type: Spontaneous
  Country: US (occurrence: US)
  Receive Date: 20130312
  Receipt Date: 20130312
  Transmission Date: 20140127
  Serious: No
  Sender: FDA-Public Use
  Company Number: US-TEVA-388115USA

PATIENT
  Sex: Male
  Weight: 108.96 kg

DRUGS (2)
  1. QNASL [Suspect]
     Indication: PERENNIAL ALLERGY
     Dosage: 2 SPRAYS EACH NOSTRIL EVERY BEDTIME
     Route: 055
     Dates: start: 201301
  2. COMBIDAN [Concomitant]
     Indication: GLAUCOMA
     Dosage: 2 DROPS PER EYE DAILY
     Route: 031

REACTIONS (2)
  - Oropharyngeal pain [Not Recovered/Not Resolved]
  - Epistaxis [Not Recovered/Not Resolved]
